FAERS Safety Report 17881854 (Version 1)
Quarter: 2020Q2

REPORT INFORMATION
  Report Type: Spontaneous
  Country: US (occurrence: US)
  Receive Date: 20200610
  Receipt Date: 20200610
  Transmission Date: 20200714
  Serious: No
  Sender: FDA-Public Use
  Company Number: US-JNJFOC-20200613056

PATIENT
  Sex: Male
  Weight: 83.99 kg

DRUGS (7)
  1. FLOMAX [Concomitant]
     Active Substance: TAMSULOSIN HYDROCHLORIDE
     Route: 065
  2. ERLEADA [Suspect]
     Active Substance: APALUTAMIDE
     Indication: PROSTATE CANCER
     Route: 048
  3. FUROSEMIDE. [Concomitant]
     Active Substance: FUROSEMIDE
     Route: 065
  4. PREDNISONE. [Concomitant]
     Active Substance: PREDNISONE
  5. SINGULAIR [Concomitant]
     Active Substance: MONTELUKAST SODIUM
     Route: 065
  6. IRON [Concomitant]
     Active Substance: IRON
     Route: 065
  7. POTASSIUM [Concomitant]
     Active Substance: POTASSIUM
     Route: 065

REACTIONS (2)
  - Swelling [Unknown]
  - Feeling hot [Unknown]
